FAERS Safety Report 15564675 (Version 1)
Quarter: 2018Q4

REPORT INFORMATION
  Report Type: Spontaneous
  Country: US (occurrence: US)
  Receive Date: 20181029
  Receipt Date: 20181029
  Transmission Date: 20190205
  Serious: Yes (Hospitalization)
  Sender: FDA-Public Use
  Company Number: None

PATIENT
  Age: 46 Year
  Sex: Female
  Weight: 75.75 kg

DRUGS (8)
  1. PREDNISONE 5MG [Concomitant]
     Active Substance: PREDNISONE
  2. BREO ELLIPTA 100-25 MCG/INH [Concomitant]
  3. VENTOLIN HFA [Concomitant]
     Active Substance: ALBUTEROL SULFATE
  4. VERZENIO [Suspect]
     Active Substance: ABEMACICLIB
     Indication: BREAST CANCER
     Route: 048
     Dates: start: 20181004
  5. IBUPROFEN 200MG [Concomitant]
     Active Substance: IBUPROFEN
  6. CYCLOBENZAPRINE 10MG [Concomitant]
     Active Substance: CYCLOBENZAPRINE
  7. SINGULAR 4MG [Concomitant]
  8. DIPHENHYDRAMINE 25MG [Concomitant]
     Active Substance: DIPHENHYDRAMINE

REACTIONS (5)
  - Therapy cessation [None]
  - Dehydration [None]
  - Abdominal pain [None]
  - Pyrexia [None]
  - Diarrhoea [None]

NARRATIVE: CASE EVENT DATE: 20181019
